FAERS Safety Report 25055884 (Version 3)
Quarter: 2025Q2

REPORT INFORMATION
  Report Type: Spontaneous
  Country: US (occurrence: US)
  Receive Date: 20250309
  Receipt Date: 20250415
  Transmission Date: 20250716
  Serious: Yes (Other)
  Sender: SANOFI AVENTIS
  Company Number: US-SA-2025SA069067

PATIENT
  Age: 69 Year
  Sex: Female

DRUGS (2)
  1. DUPIXENT [Suspect]
     Active Substance: DUPILUMAB
     Indication: Chronic obstructive pulmonary disease
     Dosage: 300 MG, QOW
     Route: 058
     Dates: start: 202501, end: 202502
  2. DUPIXENT [Suspect]
     Active Substance: DUPILUMAB
     Dosage: 300 MG, QOW
     Route: 058
     Dates: start: 20250408

REACTIONS (10)
  - Panniculitis [Not Recovered/Not Resolved]
  - Influenza [Unknown]
  - Eyelid margin crusting [Unknown]
  - Back pain [Unknown]
  - Vision blurred [Unknown]
  - Arthralgia [Unknown]
  - Chronic obstructive pulmonary disease [Unknown]
  - Rebound effect [Unknown]
  - Injection site pain [Unknown]
  - Product preparation error [Unknown]

NARRATIVE: CASE EVENT DATE: 20250101
